FAERS Safety Report 12681031 (Version 1)
Quarter: 2016Q3

REPORT INFORMATION
  Report Type: Spontaneous
  Country: CA (occurrence: CA)
  Receive Date: 20160824
  Receipt Date: 20160824
  Transmission Date: 20161109
  Serious: Yes (Other)
  Sender: FDA-Public Use
  Company Number: CA-BEH-2016072952

PATIENT
  Sex: Male

DRUGS (1)
  1. HIZENTRA [Suspect]
     Active Substance: HUMAN IMMUNOGLOBULIN G
     Indication: CHRONIC INFLAMMATORY DEMYELINATING POLYRADICULONEUROPATHY
     Route: 065

REACTIONS (5)
  - Hyperhidrosis [Unknown]
  - Heart rate increased [Unknown]
  - Dyspnoea [Unknown]
  - Polyuria [Unknown]
  - Tinnitus [Unknown]

NARRATIVE: CASE EVENT DATE: 20160822
